FAERS Safety Report 12241037 (Version 1)
Quarter: 2016Q2

REPORT INFORMATION
  Report Type: Spontaneous
  Country: US (occurrence: None)
  Receive Date: 20160405
  Receipt Date: 20160405
  Transmission Date: 20160815
  Serious: No
  Sender: FDA-Public Use
  Company Number: None

PATIENT

DRUGS (2)
  1. BRIMONIDINE [Suspect]
     Active Substance: BRIMONIDINE TARTRATE
  2. TIMOLOL. [Suspect]
     Active Substance: TIMOLOL

REACTIONS (3)
  - Ocular hyperaemia [None]
  - Intraocular pressure increased [None]
  - Eye pruritus [None]
